FAERS Safety Report 5839922-3 (Version None)
Quarter: 2008Q3

REPORT INFORMATION
  Report Type: 
  Country: None (occurrence: None)
  Receive Date: 20080807
  Receipt Date: 20080807
  Transmission Date: 20090109
  Serious: Yes (Life-Threatening, Hospitalization)
  Sender: FDA-Public Use
  Company Number: None

PATIENT
  Age: 46 Year
  Sex: Female
  Weight: 40.8237 kg

DRUGS (3)
  1. DEMECLOCYCLINE 150MG 2XDAY AT HOME [Suspect]
     Indication: PNEUMONIA
     Dosage: 2-3 DAYS DR STOPPED WHEN I TOLD HER SHE WAS WORSE
  2. AMOXICILLIN [Suspect]
     Indication: BACTERIAL INFECTION
  3. AMOXICILLIN [Suspect]
     Indication: BLOOD DISORDER

REACTIONS (19)
  - ANAEMIA [None]
  - APPENDICITIS [None]
  - CARDIOMEGALY [None]
  - CONTUSION [None]
  - DIARRHOEA [None]
  - DRUG INEFFECTIVE [None]
  - DYSPNOEA [None]
  - HAEMORRHOIDS [None]
  - HEART RATE INCREASED [None]
  - LOCALISED OEDEMA [None]
  - MEDICATION ERROR [None]
  - MENINGITIS [None]
  - NAUSEA [None]
  - OEDEMA PERIPHERAL [None]
  - ORAL HERPES [None]
  - PURPURA [None]
  - PYREXIA [None]
  - TREMOR [None]
  - URTICARIA [None]
